FAERS Safety Report 6875529-7 (Version None)
Quarter: 2010Q3

REPORT INFORMATION
  Report Type: 
  Country: None (occurrence: None)
  Receive Date: 20100727
  Receipt Date: 20100716
  Transmission Date: 20110219
  Serious: Yes (Other)
  Sender: FDA-Public Use
  Company Number: US-JNJFOC-20100705735

PATIENT
  Sex: Female

DRUGS (4)
  1. REMICADE [Suspect]
     Indication: CROHN'S DISEASE
     Route: 042
     Dates: start: 20080101
  2. REMICADE [Suspect]
     Route: 042
     Dates: start: 20080101
  3. IMURAN [Concomitant]
     Indication: CROHN'S DISEASE
  4. TRAZODONE [Concomitant]

REACTIONS (5)
  - ARTHRALGIA [None]
  - GAIT DISTURBANCE [None]
  - INFLUENZA [None]
  - RASH PUSTULAR [None]
  - SKIN CHAPPED [None]
